FAERS Safety Report 12999766 (Version 1)
Quarter: 2016Q4

REPORT INFORMATION
  Report Type: Spontaneous
  Country: US (occurrence: US)
  Receive Date: 20161205
  Receipt Date: 20161205
  Transmission Date: 20170207
  Serious: No
  Sender: FDA-Public Use
  Company Number: US-ASTRAZENECA-2016SF21847

PATIENT
  Sex: Female
  Weight: 81.6 kg

DRUGS (5)
  1. BABY ASPIRIN [Concomitant]
     Active Substance: ASPIRIN
     Dosage: 81MG, DAILY
  2. CRESTOR [Suspect]
     Active Substance: ROSUVASTATIN CALCIUM
     Indication: BLOOD CHOLESTEROL INCREASED
     Route: 048
  3. FLUTICASONE PRIOIONATE [Concomitant]
     Indication: HYPERSENSITIVITY
  4. LEVOTHYROXINE. [Concomitant]
     Active Substance: LEVOTHYROXINE
     Indication: THYROID DISORDER
     Dosage: 0.088MG, DAILY
  5. MULTIVITAMINS [Concomitant]
     Active Substance: VITAMINS
     Indication: PROPHYLAXIS

REACTIONS (5)
  - Contusion [Unknown]
  - Musculoskeletal discomfort [Unknown]
  - Heart rate increased [Unknown]
  - Thyroid disorder [Unknown]
  - Gallbladder disorder [Unknown]
